FAERS Safety Report 9096686 (Version 3)
Quarter: 2014Q1

REPORT INFORMATION
  Report Type: Spontaneous
  Country: FR (occurrence: None)
  Receive Date: 20130124
  Receipt Date: 20140108
  Transmission Date: 20141002
  Serious: Yes (Other)
  Sender: FDA-Public Use
  Company Number: FK201300108

PATIENT
  Age: 50 Year
  Sex: Female

DRUGS (4)
  1. PROPOFOL [Suspect]
     Indication: ANAESTHESIA
     Dosage: 150 MG, 1 IN 1 D
     Route: 042
     Dates: start: 20120313, end: 20120313
  2. HYPNOVEL [Suspect]
     Indication: PRODUCT USED FOR UNKNOWN INDICATION
     Dosage: 1 MG, 1 IN 1 D, IV
     Route: 042
     Dates: start: 20120313, end: 20120313
  3. SUFENTA [Suspect]
     Indication: PRODUCT USED FOR UNKNOWN INDICATION
     Dosage: 20 UG, 1 IN 1 D, IV
     Route: 042
     Dates: start: 20120313, end: 20120313
  4. CELOCURINE [Suspect]
     Indication: PRODUCT USED FOR UNKNOWN INDICATION
     Dosage: 50 MG, 1 IN 1 D, IV
     Route: 042
     Dates: start: 20120313, end: 20120313

REACTIONS (7)
  - Hypersensitivity [None]
  - Hypotension [None]
  - Erythema [None]
  - Circulatory collapse [None]
  - Shock [None]
  - Blood pressure systolic decreased [None]
  - Tryptase [None]
